FAERS Safety Report 22364120 (Version 1)
Quarter: 2023Q2

REPORT INFORMATION
  Report Type: Spontaneous
  Country: US (occurrence: US)
  Receive Date: 20230525
  Receipt Date: 20230525
  Transmission Date: 20230721
  Serious: Yes (Other)
  Sender: FDA-Public Use
  Company Number: US-SA-SAC20230524000104

PATIENT
  Sex: Female

DRUGS (1)
  1. LUMIZYME [Suspect]
     Active Substance: ALGLUCOSIDASE ALFA
     Indication: Glycogen storage disease type II
     Dosage: 800 MG, QW
     Route: 042
     Dates: start: 202203, end: 20230508

REACTIONS (4)
  - Cellulitis orbital [Recovered/Resolved]
  - Hand-foot-and-mouth disease [Recovered/Resolved]
  - Viral rash [Recovered/Resolved]
  - Pyrexia [Recovered/Resolved]
